FAERS Safety Report 14132398 (Version 1)
Quarter: 2017Q4

REPORT INFORMATION
  Report Type: Report from Study
  Country: None (occurrence: BR)
  Receive Date: 20171026
  Receipt Date: 20171026
  Transmission Date: 20180321
  Serious: Yes (Other)
  Sender: FDA-Public Use
  Company Number: BR-ABBVIE-17K-020-1936485-00

PATIENT
  Age: 43 Year
  Sex: Female
  Weight: 86 kg

DRUGS (3)
  1. HUMIRA [Suspect]
     Active Substance: ADALIMUMAB
     Indication: RHEUMATOID ARTHRITIS
     Route: 058
     Dates: start: 20161110
  2. TAMISA [Concomitant]
     Active Substance: ETHINYL ESTRADIOL\GESTODENE
     Indication: MENSTRUAL DISORDER
     Route: 048
     Dates: start: 2015
  3. SULPAN [Concomitant]
     Active Substance: BROMAZEPAM\SULPIRIDE
     Indication: DEPRESSION
     Route: 048
     Dates: start: 201612

REACTIONS (3)
  - Memory impairment [Recovered/Resolved]
  - Depression [Not Recovered/Not Resolved]
  - Daydreaming [Not Recovered/Not Resolved]

NARRATIVE: CASE EVENT DATE: 201703
